FAERS Safety Report 19817047 (Version 16)
Quarter: 2022Q2

REPORT INFORMATION
  Report Type: Spontaneous
  Country: GB (occurrence: GB)
  Receive Date: 20210910
  Receipt Date: 20220628
  Transmission Date: 20220720
  Serious: Yes (Other)
  Sender: FDA-Public Use
  Company Number: GB-GRUNENTHAL-2018-22988

PATIENT
  Sex: Female

DRUGS (34)
  1. TRAMADOL [Suspect]
     Active Substance: TRAMADOL
     Indication: Pain
     Dosage: 8 DOSAGE FORM, QD (2 DF, 4/DAY) IN 1ST TRIMESTER
     Route: 048
  2. TRAMADOL [Suspect]
     Active Substance: TRAMADOL
     Dosage: 2 DOSAGE FORM, QD
     Route: 048
  3. TRAMADOL [Suspect]
     Active Substance: TRAMADOL
     Dosage: 2 DOSAGE FORM, QD, (2 DF, QD IN 1ST TRIMESTER)
     Route: 048
  4. TRAMADOL [Suspect]
     Active Substance: TRAMADOL
     Dosage: UNK, QD
     Route: 048
  5. TRAMADOL [Suspect]
     Active Substance: TRAMADOL
     Dosage: UNK UNK, QD
     Route: 048
  6. TRAMADOL [Suspect]
     Active Substance: TRAMADOL
     Dosage: UNK, QD
     Route: 048
  7. TRAMADOL [Suspect]
     Active Substance: TRAMADOL
     Dosage: UNK UNK, QID
     Route: 048
  8. TRAMADOL [Suspect]
     Active Substance: TRAMADOL
     Dosage: 2 DOSAGE FORM, QID (2 DOSAGE FORM, QID, IN 1ST TRIMESTER)
     Route: 048
  9. FENTANYL [Suspect]
     Active Substance: FENTANYL
     Indication: Pain
     Dosage: UNK, IN 1ST TRIMESTER
     Route: 062
  10. FENTANYL [Suspect]
     Active Substance: FENTANYL
     Dosage: UNK
     Route: 062
  11. FENTANYL [Suspect]
     Active Substance: FENTANYL
     Dosage: UNK
     Route: 062
  12. FENTANYL [Suspect]
     Active Substance: FENTANYL
     Dosage: 250 DOSAGE FORM
     Route: 062
  13. FENTANYL [Suspect]
     Active Substance: FENTANYL
     Dosage: 250 DOSAGE FORM(250 DF)
     Route: 062
  14. COCODAMOL [Suspect]
     Active Substance: ACETAMINOPHEN\CODEINE PHOSPHATE
     Indication: Pain
     Dosage: 8 DOSAGE FORM, QD (2 DF, 4/DAY)
     Route: 048
  15. COCODAMOL [Suspect]
     Active Substance: ACETAMINOPHEN\CODEINE PHOSPHATE
     Dosage: 2 DOSAGE FORM, QD
     Route: 048
  16. COCODAMOL [Suspect]
     Active Substance: ACETAMINOPHEN\CODEINE PHOSPHATE
     Dosage: 2 DOSAGE FORM, QD (2 DF, QD IN 1ST TRIMESTER)
     Route: 048
  17. COCODAMOL [Suspect]
     Active Substance: ACETAMINOPHEN\CODEINE PHOSPHATE
     Dosage: 2 DOSAGE FORM, 4 TIMES/DAY (8 DOSAGE FORM 1 A DAY IN 1ST TRIMESTER)
     Route: 048
  18. COCODAMOL [Suspect]
     Active Substance: ACETAMINOPHEN\CODEINE PHOSPHATE
     Dosage: UNK UNK, QD
     Route: 048
  19. COCODAMOL [Suspect]
     Active Substance: ACETAMINOPHEN\CODEINE PHOSPHATE
     Dosage: UNK UNK, QID
     Route: 048
  20. COCODAMOL [Suspect]
     Active Substance: ACETAMINOPHEN\CODEINE PHOSPHATE
     Dosage: UNK UNK, QD
     Route: 048
  21. COCODAMOL [Suspect]
     Active Substance: ACETAMINOPHEN\CODEINE PHOSPHATE
     Dosage: 20 DOSAGE FORM, QD
     Route: 048
  22. COCODAMOL [Suspect]
     Active Substance: ACETAMINOPHEN\CODEINE PHOSPHATE
     Dosage: UNK
     Route: 048
  23. COCODAMOL [Suspect]
     Active Substance: ACETAMINOPHEN\CODEINE PHOSPHATE
     Dosage: 2 DOSAGE FORM,QD IN 1ST TRIMESTER, CO-CODAMOL EFFERVESCENT TABLET
     Route: 048
  24. COCODAMOL [Suspect]
     Active Substance: ACETAMINOPHEN\CODEINE PHOSPHATE
     Dosage: 8 DOSAGE FORM, QD ((2DF,4/DAY)IN 1ST TRIMESTER,DOSAGE FORM:UNSPECIFIED)
     Route: 048
  25. COCODAMOL [Suspect]
     Active Substance: ACETAMINOPHEN\CODEINE PHOSPHATE
     Dosage: 2 DOSAGE FORM, QD(2 DF, DAILY (2 DOSAGE FORM, 1/DAY) IN 1ST TRIMESTER)
     Route: 048
  26. COCODAMOL [Suspect]
     Active Substance: ACETAMINOPHEN\CODEINE PHOSPHATE
     Dosage: 20 DOSAGE FORM, QD
     Route: 048
  27. ACETAMINOPHEN [Suspect]
     Active Substance: ACETAMINOPHEN
     Indication: Pain
     Dosage: 8 DOSAGE FORM, QD (8 DF, QD (2 DF, 4/DAY) IN 1ST TRIMESTER
     Route: 048
  28. ACETAMINOPHEN [Suspect]
     Active Substance: ACETAMINOPHEN
     Dosage: 8 DOSAGE FORM, QD (8 DF, QD (2 DF, 4/DAY) IN 1ST TRIMESTER
     Route: 048
  29. ACETAMINOPHEN [Suspect]
     Active Substance: ACETAMINOPHEN
     Dosage: UNK
     Route: 048
  30. ACETAMINOPHEN [Suspect]
     Active Substance: ACETAMINOPHEN
     Dosage: 2 DOSAGE FORM, QD
     Route: 048
  31. ACETAMINOPHEN [Suspect]
     Active Substance: ACETAMINOPHEN
     Dosage: 2 DOSAGE FORM, QID(2 DF, QID)
     Route: 048
  32. DURAGESIC [Suspect]
     Active Substance: FENTANYL
     Indication: Pain
     Dosage: UNK (TRANSDERMAL PATCH)
     Route: 062
  33. DURAGESIC [Suspect]
     Active Substance: FENTANYL
     Dosage: UNK DOSAGE FORM: UNSPECIFIED, IN 1ST TRIMESTER
     Route: 062
  34. DURAGESIC [Suspect]
     Active Substance: FENTANYL
     Dosage: UNK
     Route: 065

REACTIONS (10)
  - Body dysmorphic disorder [Recovered/Resolved]
  - Crying [Recovered/Resolved]
  - Amnesia [Recovered/Resolved]
  - Dependence [Recovered/Resolved]
  - Somnolence [Recovered/Resolved]
  - Nausea [Recovered/Resolved]
  - Withdrawal syndrome [Recovered/Resolved]
  - Drug ineffective [Unknown]
  - Drug abuse [Unknown]
  - Maternal exposure during pregnancy [Recovered/Resolved]
